FAERS Safety Report 9879414 (Version 2)
Quarter: 2014Q1

REPORT INFORMATION
  Report Type: Spontaneous
  Country: US (occurrence: US)
  Receive Date: 20140206
  Receipt Date: 20140226
  Transmission Date: 20141002
  Serious: Yes (Other)
  Sender: FDA-Public Use
  Company Number: US-PFIZER INC-2014032542

PATIENT
  Age: 53 Year
  Sex: Female
  Weight: 46.26 kg

DRUGS (3)
  1. XANAX [Suspect]
     Indication: ANXIETY
     Dosage: 0.5 MG, FOUR TO FIVE TIMES A DAY
     Route: 048
     Dates: start: 1995
  2. ALPRAZOLAM [Suspect]
     Dosage: UNK
     Dates: start: 1990
  3. LYRICA [Concomitant]
     Indication: FIBROMYALGIA
     Dosage: UNK

REACTIONS (3)
  - Coeliac disease [Unknown]
  - Pain [Unknown]
  - Therapeutic response unexpected [Unknown]
